FAERS Safety Report 12566672 (Version 4)
Quarter: 2016Q4

REPORT INFORMATION
  Report Type: Spontaneous
  Country: US (occurrence: US)
  Receive Date: 20160718
  Receipt Date: 20161104
  Transmission Date: 20170207
  Serious: Yes (Hospitalization, Other)
  Sender: FDA-Public Use
  Company Number: US-PFIZER INC-2016340395

PATIENT
  Age: 64 Year
  Sex: Male

DRUGS (1)
  1. SOLU-MEDROL [Suspect]
     Active Substance: METHYLPREDNISOLONE SODIUM SUCCINATE
     Dosage: UNK

REACTIONS (8)
  - Abasia [Unknown]
  - Mental status changes [Unknown]
  - Multiple sclerosis relapse [Unknown]
  - Irritability [Unknown]
  - Drug hypersensitivity [Unknown]
  - Anxiety [Unknown]
  - Limb discomfort [Unknown]
  - Insomnia [Unknown]

NARRATIVE: CASE EVENT DATE: 20160606
